FAERS Safety Report 6772713-8 (Version None)
Quarter: 2010Q2

REPORT INFORMATION
  Report Type: 
  Country: None (occurrence: None)
  Receive Date: 20100616
  Receipt Date: 20100607
  Transmission Date: 20101027
  Serious: Yes (Hospitalization)
  Sender: FDA-Public Use
  Company Number: DE-ABBOTT-10P-062-0626655-00

PATIENT
  Sex: Female
  Weight: 47 kg

DRUGS (2)
  1. HUMIRA [Suspect]
     Indication: CROHN'S DISEASE
     Route: 058
     Dates: start: 20080429, end: 20100101
  2. METHOTREXATE [Concomitant]
     Indication: CROHN'S DISEASE
     Dosage: STOPPED AFTER 3 WEEKS DUE TO INTOLERANCE
     Dates: start: 20050101, end: 20050101

REACTIONS (3)
  - APHONIA [None]
  - BRONCHITIS [None]
  - TUBERCULOSIS [None]
